FAERS Safety Report 23838793 (Version 1)
Quarter: 2024Q2

REPORT INFORMATION
  Report Type: Report from Study
  Country: GB (occurrence: GB)
  Receive Date: 20240509
  Receipt Date: 20240509
  Transmission Date: 20240716
  Serious: Yes (Other)
  Sender: FDA-Public Use
  Company Number: GB-VANTIVE-2024VAN016741

PATIENT
  Age: 56 Year
  Sex: Male

DRUGS (2)
  1. CALCIUM CL\DEXTROSE\MAGNESIUM CL\SODIUM BICAR\SODIUM CL\SODIUM LACT [Suspect]
     Active Substance: CALCIUM CHLORIDE\DEXTROSE MONOHYDRATE\MAGNESIUM CHLORIDE\SODIUM BICARBONATE\SODIUM CHLORIDE\SODIUM L
     Dosage: 2000 ML
     Route: 033
     Dates: start: 20240501, end: 20240501
  2. UNSPECIFIED INGREDIENT [Suspect]
     Active Substance: UNSPECIFIED INGREDIENT
     Route: 065

REACTIONS (9)
  - Loss of consciousness [Unknown]
  - Hyperkalaemia [Unknown]
  - Unresponsive to stimuli [Unknown]
  - Pallor [Unknown]
  - Abdominal distension [Unknown]
  - Cold sweat [Unknown]
  - Heart rate decreased [Unknown]
  - Device information output issue [Unknown]
  - Cough [Unknown]

NARRATIVE: CASE EVENT DATE: 20240501
